FAERS Safety Report 9727812 (Version 1)
Quarter: 2013Q4

REPORT INFORMATION
  Report Type: Spontaneous
  Country: US (occurrence: US)
  Receive Date: 20131204
  Receipt Date: 20131204
  Transmission Date: 20140711
  Serious: Yes (Other)
  Sender: FDA-Public Use
  Company Number: US-AMGEN-USASP2013085035

PATIENT
  Age: 57 Year
  Sex: Female

DRUGS (1)
  1. ENBREL [Suspect]
     Indication: RHEUMATOID ARTHRITIS
     Dosage: 50 MG, QWK
     Route: 065
     Dates: start: 20041001

REACTIONS (5)
  - Blindness [Not Recovered/Not Resolved]
  - Vision blurred [Recovered/Resolved]
  - Mouth ulceration [Recovered/Resolved]
  - Oral herpes [Recovered/Resolved]
  - Candida infection [Recovered/Resolved]
